FAERS Safety Report 4717901-7 (Version None)
Quarter: 2005Q3

REPORT INFORMATION
  Report Type: 
  Country: None (occurrence: None)
  Receive Date: 20050718
  Receipt Date: 20050121
  Transmission Date: 20060218
  Serious: No
  Sender: FDA-Public Use
  Company Number: 2005000167

PATIENT
  Age: 55 Year
  Sex: Female

DRUGS (6)
  1. TARCEVA [Suspect]
     Indication: NON-SMALL CELL LUNG CANCER
     Dosage: 150 MG (QD), ORAL;  150 MG (PO QD), ORAL
     Route: 048
     Dates: start: 20041231, end: 20050111
  2. TARCEVA [Suspect]
     Indication: NON-SMALL CELL LUNG CANCER
     Dosage: 150 MG (QD), ORAL;  150 MG (PO QD), ORAL
     Route: 048
     Dates: start: 20050201
  3. DIPHENOXYLATE (DIPHENOXYLATE) [Concomitant]
  4. NYSTATIN [Concomitant]
  5. BIAFINE [Concomitant]
  6. VICODIN [Concomitant]

REACTIONS (4)
  - CONJUNCTIVITIS INFECTIVE [None]
  - DIARRHOEA [None]
  - EYE DISORDER [None]
  - RASH [None]
